FAERS Safety Report 4999215-3 (Version None)
Quarter: 2006Q2

REPORT INFORMATION
  Report Type: 
  Country: None (occurrence: None)
  Receive Date: 20060509
  Receipt Date: 20060509
  Transmission Date: 20061013
  Serious: Yes (Hospitalization, Disabling)
  Sender: FDA-Public Use
  Company Number: None

PATIENT
  Age: 39 Year
  Sex: Female
  Weight: 57.6068 kg

DRUGS (2)
  1. GEODON [Suspect]
     Indication: FIBROMYALGIA
     Dosage: ONE A DAY PO
     Route: 048
  2. GEODON [Suspect]
     Indication: SLEEP DISORDER
     Dosage: ONE A DAY PO
     Route: 048

REACTIONS (3)
  - CONVULSION [None]
  - INTERVERTEBRAL DISC PROTRUSION [None]
  - TREMOR [None]
